FAERS Safety Report 4408695-3 (Version None)
Quarter: 2004Q3

REPORT INFORMATION
  Report Type: 
  Country: None (occurrence: None)
  Receive Date: 20040723
  Receipt Date: 20040714
  Transmission Date: 20050211
  Serious: Yes (Hospitalization)
  Sender: FDA-Public Use
  Company Number: 2004-03136

PATIENT
  Age: 67 Year
  Sex: Female

DRUGS (4)
  1. METFORMIN HCL [Suspect]
     Indication: DIABETES MELLITUS
     Dosage: 500MG, BID, ORAL
     Route: 048
  2. ISOSORBIDE MONIONITRATE (ISOSORBIDE MONONITRATE) [Concomitant]
  3. DILTIAZEM [Concomitant]
  4. ASPIRIN [Concomitant]

REACTIONS (1)
  - HEPATITIS CHOLESTATIC [None]
